FAERS Safety Report 11037908 (Version 1)
Quarter: 2015Q2

REPORT INFORMATION
  Report Type: Spontaneous
  Country: US (occurrence: None)
  Receive Date: 20150415
  Receipt Date: 20150415
  Transmission Date: 20150821
  Serious: Yes (Hospitalization)
  Sender: FDA-Public Use
  Company Number: None

PATIENT
  Age: 54 Year
  Sex: Male
  Weight: 92.5 kg

DRUGS (1)
  1. LISINOPRIL. [Suspect]
     Active Substance: LISINOPRIL
     Route: 048
     Dates: start: 20140222, end: 20150331

REACTIONS (5)
  - Urticaria [None]
  - Pruritus [None]
  - Lip swelling [None]
  - Angioedema [None]
  - Rash [None]

NARRATIVE: CASE EVENT DATE: 20150331
